FAERS Safety Report 17026317 (Version 1)
Quarter: 2019Q4

REPORT INFORMATION
  Report Type: Spontaneous
  Country: US (occurrence: US)
  Receive Date: 20191112
  Receipt Date: 20191112
  Transmission Date: 20200122
  Serious: Yes (Hospitalization)
  Sender: FDA-Public Use
  Company Number: None

PATIENT
  Age: 53 Year
  Sex: Male
  Weight: 79 kg

DRUGS (1)
  1. SYNJARDY XR [Suspect]
     Active Substance: EMPAGLIFLOZIN\METFORMIN HYDROCHLORIDE
     Indication: TYPE 2 DIABETES MELLITUS
     Route: 048
     Dates: start: 20191101, end: 20191109

REACTIONS (6)
  - Vomiting [None]
  - Blood glucose increased [None]
  - Euglycaemic diabetic ketoacidosis [None]
  - Urine ketone body present [None]
  - Metabolic acidosis [None]
  - Nausea [None]

NARRATIVE: CASE EVENT DATE: 20191109
